FAERS Safety Report 9433812 (Version 1)
Quarter: 2013Q3

REPORT INFORMATION
  Report Type: Spontaneous
  Country: FR (occurrence: FR)
  Receive Date: 20130731
  Receipt Date: 20130731
  Transmission Date: 20140515
  Serious: Yes (Hospitalization, Disabling)
  Sender: FDA-Public Use
  Company Number: PHHY2013FR080723

PATIENT
  Age: 64 Year
  Sex: Male

DRUGS (13)
  1. ZOMETA [Suspect]
     Indication: HYPERCALCAEMIA
     Dosage: 4 MG, QUARTERLY
     Route: 042
     Dates: start: 20021112, end: 20041210
  2. ZOMETA [Suspect]
     Dosage: 4 MG, QMO
     Route: 042
     Dates: start: 20041210, end: 20060619
  3. ZOMETA [Suspect]
     Dosage: 3 MG, ONCE
     Route: 042
     Dates: start: 20070630, end: 20070630
  4. ZOMETA [Suspect]
     Dosage: 4 MG, QMO
     Route: 042
     Dates: start: 20070727, end: 20070820
  5. AREDIA [Suspect]
     Indication: HYPERCALCAEMIA
     Dosage: 90 MG, QMO
     Route: 042
     Dates: start: 19991021, end: 20020910
  6. AREDIA [Suspect]
     Dosage: 90 MG, QMO
     Route: 042
     Dates: start: 20080405
  7. AREDIA [Suspect]
     Dosage: 90 MG, QMO
     Route: 042
     Dates: start: 200805
  8. AREDIA [Suspect]
     Dosage: 90 MG, QMO
     Route: 042
     Dates: start: 20080617
  9. AREDIA [Suspect]
     Dosage: 90 MG, QMO
     Route: 042
     Dates: start: 20080725
  10. AREDIA [Suspect]
     Dosage: 90 MG, QMO
     Route: 042
     Dates: start: 20130110
  11. AREDIA [Suspect]
     Dosage: 90 MG, QMO
     Route: 042
     Dates: start: 20130205
  12. AREDIA [Suspect]
     Dosage: 45 MG, QMO
     Route: 042
     Dates: start: 20130408
  13. AREDIA [Suspect]
     Dosage: 45 MG, QMO
     Route: 042
     Dates: start: 20130509

REACTIONS (1)
  - Osteonecrosis of jaw [Recovered/Resolved]
